FAERS Safety Report 8600029 (Version 3)
Quarter: 2013Q1

REPORT INFORMATION
  Report Type: Report from Study
  Country: US (occurrence: US)
  Receive Date: 20120605
  Receipt Date: 20130218
  Transmission Date: 20140127
  Serious: Yes (Death, Other)
  Sender: FDA-Public Use
  Company Number: US-MPIJNJ-2012-00586

PATIENT
  Sex: 0

DRUGS (4)
  1. VELCADE [Suspect]
     Indication: PLASMA CELL MYELOMA
     Dosage: 1.3 MG/M2, CYCLIC
     Route: 042
  2. DEXAMETHASONE [Suspect]
     Indication: PLASMA CELL MYELOMA
     Dosage: 40 MG, CYCLIC
     Route: 048
  3. ACYCLOVIR                          /00587301/ [Concomitant]
     Indication: HERPES ZOSTER
  4. ACYCLOVIR                          /00587301/ [Concomitant]
     Indication: PROPHYLAXIS

REACTIONS (1)
  - Adrenal gland cancer [Fatal]
